FAERS Safety Report 9248671 (Version 2)
Quarter: 2013Q2

REPORT INFORMATION
  Report Type: Spontaneous
  Country: US (occurrence: US)
  Receive Date: 20130423
  Receipt Date: 20130430
  Transmission Date: 20140414
  Serious: Yes (Hospitalization)
  Sender: FDA-Public Use
  Company Number: US-ASTRAZENECA-2013SE25549

PATIENT
  Age: 125 Day
  Sex: Male

DRUGS (1)
  1. SYNAGIS [Suspect]
     Dosage: 50 MILLIGRAMS/0.5 MILLILITERS, 15 MILLIGRAMS/ KILOGRAMS, MONTHLY.
     Route: 030
     Dates: start: 20130402

REACTIONS (2)
  - Pneumonia [Recovered/Resolved]
  - Metapneumovirus infection [Unknown]
